FAERS Safety Report 25939693 (Version 1)
Quarter: 2025Q4

REPORT INFORMATION
  Report Type: Spontaneous
  Country: EU (occurrence: EU)
  Receive Date: 20251020
  Receipt Date: 20251020
  Transmission Date: 20260117
  Serious: Yes (Other)
  Sender: ALEXION PHARMACEUTICALS
  Company Number: EU-COOPER CONSUMER HEALTH B.V-CC2025SE000038

PATIENT
  Age: 77 Year
  Sex: Male

DRUGS (3)
  1. ESOMEPRAZOLE [Suspect]
     Active Substance: ESOMEPRAZOLE
     Indication: Product used for unknown indication
     Dosage: UNK
     Route: 065
  2. ASPIRIN\CAFFEINE\CODEINE [Suspect]
     Active Substance: ASPIRIN\CAFFEINE\CODEINE
     Indication: Headache
     Dosage: 2 DOSAGE FORM, AS NEEDED
  3. MAGNESIUM [Concomitant]
     Active Substance: MAGNESIUM
     Indication: Product used for unknown indication
     Dosage: UNK UNK, 2/WEEK

REACTIONS (6)
  - Rash [Unknown]
  - Product physical issue [Unknown]
  - Type 1 diabetes mellitus [Unknown]
  - Pain [Unknown]
  - Blood disorder [Unknown]
  - Anxiety [Unknown]
